FAERS Safety Report 10029069 (Version 1)
Quarter: 2014Q1

REPORT INFORMATION
  Report Type: Spontaneous
  Country: US (occurrence: US)
  Receive Date: 20140321
  Receipt Date: 20140321
  Transmission Date: 20141002
  Serious: No
  Sender: FDA-Public Use
  Company Number: US-009507513-1403USA003682

PATIENT
  Sex: Female

DRUGS (2)
  1. OXYTROL FOR WOMEN [Suspect]
     Indication: URINARY INCONTINENCE
     Dosage: UNK UNK, UNKNOWN
     Route: 062
     Dates: start: 20140214
  2. OXYTROL FOR WOMEN [Suspect]
     Indication: POLLAKIURIA

REACTIONS (4)
  - Dizziness [Unknown]
  - Balance disorder [Unknown]
  - Discomfort [Unknown]
  - Drug effect decreased [Unknown]
